FAERS Safety Report 25574304 (Version 1)
Quarter: 2025Q3

REPORT INFORMATION
  Report Type: Report from Study
  Country: KR (occurrence: KR)
  Receive Date: 20250717
  Receipt Date: 20250717
  Transmission Date: 20251021
  Serious: Yes (Death, Other)
  Sender: ABBVIE
  Company Number: KR-ABBVIE-6372784

PATIENT
  Age: 69 Year
  Sex: Female
  Weight: 48 kg

DRUGS (85)
  1. VENCLEXTA [Suspect]
     Active Substance: VENETOCLAX
     Indication: Acute myeloid leukaemia
     Route: 048
     Dates: start: 20241224, end: 20250702
  2. VENCLEXTA [Suspect]
     Active Substance: VENETOCLAX
     Indication: Acute myeloid leukaemia
     Route: 048
     Dates: start: 20241130, end: 20241130
  3. VENCLEXTA [Suspect]
     Active Substance: VENETOCLAX
     Indication: Acute myeloid leukaemia
     Route: 048
     Dates: start: 20241129, end: 20241129
  4. VENCLEXTA [Suspect]
     Active Substance: VENETOCLAX
     Indication: Acute myeloid leukaemia
     Route: 048
     Dates: start: 20241201, end: 20241201
  5. VENCLEXTA [Suspect]
     Active Substance: VENETOCLAX
     Indication: Acute myeloid leukaemia
     Route: 048
     Dates: start: 20241128, end: 20241128
  6. Esomezol [Concomitant]
     Indication: Dyspepsia
     Route: 048
     Dates: start: 20250325, end: 20250330
  7. NORVASC [Concomitant]
     Active Substance: AMLODIPINE BESYLATE
     Indication: Hypertension
     Route: 048
     Dates: start: 20250318
  8. Tylicol [Concomitant]
     Indication: Pain
     Route: 042
     Dates: start: 20250703
  9. Tylicol [Concomitant]
     Indication: Pain
     Route: 042
     Dates: start: 20241126, end: 20241222
  10. Trestan [Concomitant]
     Indication: Decreased appetite
     Dosage: 1 DOSAGE FORM
     Route: 048
     Dates: start: 20241214, end: 20241215
  11. GEMIGLIPTIN\METFORMIN [Concomitant]
     Active Substance: GEMIGLIPTIN\METFORMIN
     Indication: Diabetes mellitus
     Dosage: 1 DOSAGE FORM
     Route: 048
     Dates: start: 20250123
  12. ALLOPURINOL [Concomitant]
     Active Substance: ALLOPURINOL
     Indication: Tumour lysis syndrome
     Route: 048
     Dates: start: 20241128, end: 20241221
  13. Tazoperan [Concomitant]
     Indication: Pyrexia
     Route: 042
     Dates: start: 20241127, end: 20241211
  14. ALLELOCK [Concomitant]
     Active Substance: OLOPATADINE HYDROCHLORIDE
     Indication: Pruritus
     Route: 048
     Dates: start: 20241219, end: 20241223
  15. DEXAMETHASONE DAEWON [Concomitant]
     Indication: Pruritus
     Route: 042
     Dates: start: 20241224, end: 20241231
  16. Solondo [Concomitant]
     Indication: Bronchopulmonary aspergillosis
     Route: 048
     Dates: start: 20250708, end: 20250710
  17. Dulackhan easy [Concomitant]
     Indication: Constipation
     Route: 048
     Dates: start: 20241129, end: 20241214
  18. Dulackhan easy [Concomitant]
     Indication: Constipation
     Route: 048
     Dates: start: 20250324, end: 20250609
  19. MAXIPIME [Concomitant]
     Active Substance: CEFEPIME HYDROCHLORIDE
     Indication: Pyrexia
     Route: 042
     Dates: start: 20241214, end: 20241218
  20. MAXIPIME [Concomitant]
     Active Substance: CEFEPIME HYDROCHLORIDE
     Indication: Pyrexia
     Route: 042
  21. NOXAFIL [Concomitant]
     Active Substance: POSACONAZOLE
     Indication: Infection prophylaxis
     Route: 048
     Dates: start: 20241129, end: 20241222
  22. NOXAFIL [Concomitant]
     Active Substance: POSACONAZOLE
     Indication: Infection prophylaxis
     Route: 048
  23. Hepa merz [Concomitant]
     Indication: Liver function test abnormal
     Route: 042
     Dates: start: 20241128, end: 20241222
  24. Hepa merz [Concomitant]
     Indication: Liver function test abnormal
     Route: 042
  25. Hepa merz [Concomitant]
     Indication: Liver function test abnormal
     Route: 042
  26. Hepa merz [Concomitant]
     Indication: Liver function test abnormal
     Route: 042
     Dates: start: 20250704
  27. BACTRIM [Concomitant]
     Active Substance: SULFAMETHOXAZOLE\TRIMETHOPRIM
     Indication: Bronchopulmonary aspergillosis
     Dosage: 2.2 DOSAGE FORM
     Route: 042
     Dates: start: 20250709, end: 20250712
  28. LEVOFLOXACIN [Concomitant]
     Active Substance: LEVOFLOXACIN
     Indication: Infection prophylaxis
     Route: 048
     Dates: start: 20250310
  29. AMBISOME [Concomitant]
     Active Substance: AMPHOTERICIN B
     Indication: Bronchopulmonary aspergillosis
     Route: 042
     Dates: start: 20250708, end: 20250710
  30. NEXIUM I.V. [Concomitant]
     Active Substance: ESOMEPRAZOLE SODIUM
     Indication: Dyspepsia
     Route: 042
     Dates: start: 20250401, end: 20250405
  31. FOSAMAX [Concomitant]
     Active Substance: ALENDRONATE SODIUM
     Indication: Osteoporosis
     Route: 048
     Dates: start: 20241205, end: 20250201
  32. Godex [Concomitant]
     Indication: Liver function test increased
     Dosage: 1 DOSAGE FORM
     Route: 048
     Dates: start: 20241128, end: 20250101
  33. Godex [Concomitant]
     Indication: Liver function test increased
     Route: 048
     Dates: start: 20250704
  34. Dong a perdipine [Concomitant]
     Indication: Blood pressure increased
     Route: 042
     Dates: start: 20241228, end: 20250101
  35. Dong a perdipine [Concomitant]
     Indication: Blood pressure increased
     Route: 042
     Dates: start: 20250317, end: 20250319
  36. Dong a perdipine [Concomitant]
     Indication: Blood pressure increased
     Route: 042
  37. MAGNESIUM HYDROXIDE [Concomitant]
     Active Substance: MAGNESIUM HYDROXIDE
     Indication: Constipation
     Route: 048
     Dates: start: 20241130
  38. Yuhan meropen [Concomitant]
     Indication: Pyrexia
     Route: 042
     Dates: start: 20241219, end: 20241231
  39. Yuhan meropen [Concomitant]
     Indication: Pyrexia
     Route: 042
  40. MEQUITAZINE [Concomitant]
     Active Substance: MEQUITAZINE
     Indication: Rash
     Route: 048
     Dates: start: 20250402, end: 20250413
  41. MEQUITAZINE [Concomitant]
     Active Substance: MEQUITAZINE
     Indication: Rash
     Route: 048
     Dates: start: 20241224, end: 20250201
  42. Fedulow [Concomitant]
     Indication: Prophylaxis
     Dosage: SUSPENSION
     Route: 048
     Dates: start: 20250708, end: 20250710
  43. Fedulow [Concomitant]
     Indication: Prophylaxis
     Route: 048
  44. PIPERACILLIN SODIUM\TAZOBACTAM SODIUM [Concomitant]
     Active Substance: PIPERACILLIN SODIUM\TAZOBACTAM SODIUM
     Indication: Pyrexia
     Route: 042
     Dates: start: 20250704
  45. RIVOTRIL [Concomitant]
     Active Substance: CLONAZEPAM
     Indication: Insomnia
     Route: 048
     Dates: start: 20241226, end: 20250201
  46. Vacrax [Concomitant]
     Indication: Infection prophylaxis
     Route: 048
     Dates: start: 20241128, end: 20250209
  47. Vacrax [Concomitant]
     Indication: Infection prophylaxis
     Route: 048
  48. MOSAPRIDE CITRATE [Concomitant]
     Active Substance: MOSAPRIDE CITRATE
     Indication: Abdominal discomfort
     Route: 048
     Dates: start: 20250704
  49. PROPACETAMOL HYDROCHLORIDE [Concomitant]
     Active Substance: PROPACETAMOL HYDROCHLORIDE
     Indication: Pyrexia
     Route: 042
     Dates: start: 20241214, end: 20241222
  50. PROPACETAMOL HYDROCHLORIDE [Concomitant]
     Active Substance: PROPACETAMOL HYDROCHLORIDE
     Indication: Pyrexia
     Route: 042
     Dates: start: 20241126, end: 202412
  51. Vizadakin [Concomitant]
     Indication: Acute myeloid leukaemia
     Route: 042
     Dates: start: 20250201, end: 20250307
  52. Vizadakin [Concomitant]
     Indication: Acute myeloid leukaemia
     Route: 042
     Dates: start: 20250605, end: 20250611
  53. Vizadakin [Concomitant]
     Indication: Acute myeloid leukaemia
     Route: 042
     Dates: start: 20241128, end: 20241204
  54. Vizadakin [Concomitant]
     Indication: Acute myeloid leukaemia
     Route: 042
     Dates: start: 20250310, end: 20250316
  55. NEXIUM [Concomitant]
     Active Substance: ESOMEPRAZOLE MAGNESIUM
     Indication: Abdominal discomfort
     Route: 048
     Dates: start: 20250708, end: 20250710
  56. PRUCALOPRIDE SUCCINATE [Concomitant]
     Active Substance: PRUCALOPRIDE SUCCINATE
     Indication: Constipation
     Route: 048
     Dates: start: 20241202, end: 20241214
  57. PRUCALOPRIDE SUCCINATE [Concomitant]
     Active Substance: PRUCALOPRIDE SUCCINATE
     Indication: Constipation
     Route: 048
     Dates: start: 20250709, end: 20250710
  58. Casfung [Concomitant]
     Indication: Pyrexia
     Route: 042
     Dates: start: 20241127, end: 20241129
  59. Casfung [Concomitant]
     Indication: Pyrexia
     Route: 042
     Dates: start: 20241224, end: 20241231
  60. ACETYLCYSTEINE [Concomitant]
     Active Substance: ACETYLCYSTEINE
     Indication: Bronchopulmonary aspergillosis
     Route: 042
     Dates: start: 20250707, end: 20250711
  61. ACETYLCYSTEINE [Concomitant]
     Active Substance: ACETYLCYSTEINE
     Indication: Bronchopulmonary aspergillosis
     Route: 042
  62. ACETYLCYSTEINE [Concomitant]
     Active Substance: ACETYLCYSTEINE
     Indication: Bronchopulmonary aspergillosis
     Route: 042
  63. Tasna [Concomitant]
     Indication: Metabolic acidosis
     Route: 048
     Dates: start: 20250704, end: 20250708
  64. DIFLUCAN [Concomitant]
     Active Substance: FLUCONAZOLE
     Indication: Infection prophylaxis
     Route: 048
     Dates: start: 20250131, end: 20250707
  65. DIFLUCAN [Concomitant]
     Active Substance: FLUCONAZOLE
     Indication: Infection prophylaxis
     Route: 048
  66. LENOGRASTIM [Concomitant]
     Active Substance: LENOGRASTIM
     Indication: Neutrophil count decreased
     Route: 042
     Dates: start: 20250317, end: 20250428
  67. LENOGRASTIM [Concomitant]
     Active Substance: LENOGRASTIM
     Indication: Neutrophil count decreased
     Route: 042
     Dates: start: 20250612
  68. LENOGRASTIM [Concomitant]
     Active Substance: LENOGRASTIM
     Indication: Neutrophil count decreased
     Route: 042
     Dates: start: 20241209, end: 20241231
  69. LENOGRASTIM [Concomitant]
     Active Substance: LENOGRASTIM
     Indication: Neutrophil count decreased
     Route: 042
  70. LENOGRASTIM [Concomitant]
     Active Substance: LENOGRASTIM
     Indication: Neutrophil count decreased
     Dosage: 250MCG
     Route: 042
     Dates: start: 20250217, end: 20250309
  71. LENOGRASTIM [Concomitant]
     Active Substance: LENOGRASTIM
     Indication: Neutrophil count decreased
     Route: 042
  72. Megerol [Concomitant]
     Indication: Decreased appetite
     Dosage: SUSPENSION
     Route: 048
     Dates: start: 20241216
  73. VANCOCIN [Concomitant]
     Active Substance: VANCOMYCIN HYDROCHLORIDE
     Indication: Pyrexia
     Route: 042
     Dates: start: 20250707
  74. LINAGLIPTIN [Concomitant]
     Active Substance: LINAGLIPTIN
     Indication: Diabetes mellitus
     Route: 048
     Dates: start: 20241129, end: 20250202
  75. SULFAMETHOXAZOLE\TRIMETHOPRIM [Concomitant]
     Active Substance: SULFAMETHOXAZOLE\TRIMETHOPRIM
     Indication: Infection prophylaxis
     Dosage: 1 DOSAGE FORM
     Route: 048
     Dates: start: 20241128, end: 20250209
  76. Besillion [Concomitant]
     Indication: Pruritus
     Route: 048
     Dates: start: 20241219, end: 20241223
  77. Adipam [Concomitant]
     Indication: Rash
     Route: 048
     Dates: start: 20241224, end: 20250101
  78. Adipam [Concomitant]
     Indication: Rash
     Route: 048
     Dates: start: 20250402, end: 20250413
  79. Adipam [Concomitant]
     Indication: Rash
     Route: 048
  80. URSODIOL [Concomitant]
     Active Substance: URSODIOL
     Indication: Liver function test increased
     Route: 048
     Dates: start: 20241128, end: 20250101
  81. URSODIOL [Concomitant]
     Active Substance: URSODIOL
     Indication: Liver function test increased
     Route: 048
     Dates: start: 20250704
  82. AMARYL [Concomitant]
     Active Substance: GLIMEPIRIDE
     Indication: Diabetes mellitus
     Route: 048
     Dates: start: 20250203
  83. XYZAL [Concomitant]
     Active Substance: LEVOCETIRIZINE DIHYDROCHLORIDE
     Indication: Pruritus
     Route: 048
     Dates: start: 20241224, end: 20250201
  84. Dicamax [Concomitant]
     Indication: Osteoporosis
     Dosage: ONE DOSAGE FORM OF 1000
     Route: 048
     Dates: start: 20241126, end: 20250710
  85. Cavid [Concomitant]
     Indication: Osteoporosis
     Dosage: 1 DOSAGE FORM
     Route: 048
     Dates: start: 20250102

REACTIONS (1)
  - Septic shock [Fatal]

NARRATIVE: CASE EVENT DATE: 20250712
